FAERS Safety Report 10167838 (Version 1)
Quarter: 2014Q2

REPORT INFORMATION
  Report Type: Spontaneous
  Country: US (occurrence: US)
  Receive Date: 20140512
  Receipt Date: 20140512
  Transmission Date: 20141212
  Serious: No
  Sender: FDA-Public Use
  Company Number: US-009507513-2012SP024795

PATIENT
  Sex: Female

DRUGS (3)
  1. CLARITIN ORAL SOLUTION [Suspect]
     Indication: HYPERSENSITIVITY
     Dosage: 10 ML, QD
     Route: 048
  2. CLARITIN ORAL SOLUTION [Suspect]
     Dosage: 10 ML, QAM
     Route: 048
     Dates: start: 20120422
  3. CLARITIN ORAL SOLUTION [Suspect]
     Dosage: 10 ML, ONCE
     Route: 048
     Dates: start: 20120422

REACTIONS (1)
  - Overdose [Unknown]
